FAERS Safety Report 12946259 (Version 2)
Quarter: 2016Q4

REPORT INFORMATION
  Report Type: Spontaneous
  Country: US (occurrence: US)
  Receive Date: 20161115
  Receipt Date: 20161130
  Transmission Date: 20170207
  Serious: No
  Sender: FDA-Public Use
  Company Number: US-TAIHO ONCOLOGY INC-EU-2016-01713

PATIENT
  Age: 40 Year
  Sex: Female

DRUGS (6)
  1. ALPRAZOLAM. [Concomitant]
     Active Substance: ALPRAZOLAM
     Dosage: NI
  2. GLYBURIDE. [Concomitant]
     Active Substance: GLYBURIDE
     Dosage: NI
  3. FUROSEMIDE. [Concomitant]
     Active Substance: FUROSEMIDE
     Dosage: NI
  4. ATENOLOL. [Concomitant]
     Active Substance: ATENOLOL
     Dosage: NI
  5. LONSURF [Suspect]
     Active Substance: TIPIRACIL HYDROCHLORIDE\TRIFLURIDINE
     Indication: COLON CANCER
     Route: 048
     Dates: start: 20160630, end: 201610
  6. LISINOPRIL. [Concomitant]
     Active Substance: LISINOPRIL
     Dosage: NI

REACTIONS (7)
  - Back pain [Unknown]
  - Vomiting [Not Recovered/Not Resolved]
  - Piloerection [Unknown]
  - Malaise [Unknown]
  - Disease progression [Unknown]
  - Drug ineffective [Unknown]
  - Hyperhidrosis [Unknown]

NARRATIVE: CASE EVENT DATE: 201607
